FAERS Safety Report 11320061 (Version 4)
Quarter: 2018Q2

REPORT INFORMATION
  Report Type: Report from Study
  Country: CA (occurrence: CA)
  Receive Date: 20150729
  Receipt Date: 20180527
  Transmission Date: 20180711
  Serious: Yes (Other)
  Sender: FDA-Public Use
  Company Number: PHHY2015CA052339

PATIENT
  Age: 11 Year
  Sex: Male

DRUGS (4)
  1. ILARIS [Suspect]
     Active Substance: CANAKINUMAB
     Dosage: 600 MG, Q4W
     Route: 058
  2. ILARIS [Suspect]
     Active Substance: CANAKINUMAB
     Indication: CHRONIC INFANTILE NEUROLOGICAL CUTANEOUS AND ARTICULAR SYNDROME
     Dosage: 300 MG, EVERY 4 WEEKS
     Route: 058
     Dates: start: 20150425
  3. ILARIS [Suspect]
     Active Substance: CANAKINUMAB
     Dosage: 2 MG/KG, UNK
     Route: 058
     Dates: start: 20150425
  4. ANAKINRA [Suspect]
     Active Substance: ANAKINRA
     Indication: PRODUCT USED FOR UNKNOWN INDICATION
     Route: 065

REACTIONS (15)
  - Brain injury [Unknown]
  - Headache [Unknown]
  - Fatigue [Unknown]
  - Conjunctivitis [Unknown]
  - Neurological symptom [Unknown]
  - Pain [Unknown]
  - Joint swelling [Unknown]
  - Malaise [Unknown]
  - Arthralgia [Unknown]
  - Incorrect dose administered [Unknown]
  - Intracranial pressure increased [Unknown]
  - Withdrawal syndrome [Unknown]
  - Drug intolerance [Unknown]
  - Drug ineffective [Unknown]
  - Inflammatory marker increased [Unknown]

NARRATIVE: CASE EVENT DATE: 2015
